FAERS Safety Report 10220894 (Version 2)
Quarter: 2014Q2

REPORT INFORMATION
  Report Type: Spontaneous
  Country: TH (occurrence: TH)
  Receive Date: 20140606
  Receipt Date: 20140617
  Transmission Date: 20141212
  Serious: Yes (Other)
  Sender: FDA-Public Use
  Company Number: TH-MERCK-1406THA000999

PATIENT
  Age: 35 Year
  Sex: Male

DRUGS (3)
  1. VICTRELIS [Suspect]
     Indication: HEPATITIS C
     Dosage: 4 CAPSULES (800 MG), TID
     Route: 048
     Dates: start: 20140529
  2. PEGINTRON REDIPEN 80 MCG [Suspect]
     Indication: HEPATITIS C
     Dosage: REDIPEN, UNK
     Dates: start: 201404
  3. RIBAVIRIN [Suspect]
     Indication: HEPATITIS C
     Dosage: UNK
     Route: 048
     Dates: start: 201404

REACTIONS (3)
  - Irritability [Recovered/Resolved]
  - Anger [Recovered/Resolved]
  - Aggression [Recovered/Resolved]
